FAERS Safety Report 8449679-8 (Version None)
Quarter: 2012Q2

REPORT INFORMATION
  Report Type: 
  Country: None (occurrence: None)
  Receive Date: 20120620
  Receipt Date: 20120614
  Transmission Date: 20120825
  Serious: No
  Sender: FDA-Public Use
  Company Number: US-PFIZER INC-2012144608

PATIENT
  Age: 69 Year
  Sex: Female

DRUGS (16)
  1. HUMIRA [Suspect]
     Dosage: 80 MG, DAILY
     Dates: start: 20120321
  2. MESALAZINE [Concomitant]
     Indication: CROHN'S DISEASE
     Dosage: 8 DF, DAILY
     Route: 048
  3. PRIMIDONE [Concomitant]
     Indication: MIGRAINE
  4. ACETAMINOPHEN [Concomitant]
     Indication: PAIN
     Dosage: 325 MG, AS NEEDED
  5. HUMIRA [Suspect]
     Indication: CROHN'S DISEASE
     Dosage: 40 MG, 1X/DAY
     Dates: start: 20120307, end: 20120320
  6. DISOPYRAMIDE PHOSPHATE [Concomitant]
     Indication: CARDIAC DISORDER
     Dosage: 50 MG, 2X/DAY
  7. NEURONTIN [Suspect]
     Dosage: UNK
     Route: 048
     Dates: start: 20120307
  8. ESOMEPRAZOLE SODIUM [Concomitant]
     Indication: GASTROOESOPHAGEAL REFLUX DISEASE
     Dosage: 1 DF, 1X/DAY
     Route: 048
  9. LORTAB [Concomitant]
     Indication: PAIN
     Dosage: 7.5 MG, AS NEEDED
  10. LOMOTIL [Concomitant]
     Indication: DIARRHOEA
     Dosage: AS REQUIRED
  11. NEURONTIN [Suspect]
     Indication: ARTHRITIS
     Dosage: 200MG EVERY MORNING AND 400MG EVERY EVENING
     Route: 048
  12. PROPRANOLOL HYDROCHLORIDE [Concomitant]
     Indication: CONVULSION
     Dosage: 60 MG EVERY MORNING
  13. PROPRANOLOL HYDROCHLORIDE [Concomitant]
     Indication: MIGRAINE
  14. CYANOCOBALAMIN [Concomitant]
     Dosage: MONTHLY
  15. PRIMIDONE [Concomitant]
     Indication: CONVULSION
     Dosage: 100 MG, 3X/DAY
     Route: 048
  16. DIBROMPROPAMIDINE ISETIONATE/PROMETHAZINE HYDROCHLORIDE [Concomitant]
     Indication: NAUSEA
     Dosage: 25 MG, AS NEEDED

REACTIONS (1)
  - DEPRESSION [None]
